FAERS Safety Report 4986088-8 (Version None)
Quarter: 2006Q1

REPORT INFORMATION
  Report Type: 
  Country: None (occurrence: None)
  Receive Date: 20060309
  Receipt Date: 20050630
  Transmission Date: 20060701
  Serious: Yes (Other)
  Sender: FDA-Public Use
  Company Number: 409300

PATIENT
  Sex: 0

DRUGS (3)
  1. ACCUTANE [Suspect]
     Dates: start: 20031215, end: 20031215
  2. ISOTRETINOIN [Suspect]
     Dates: start: 20040115, end: 20040815
  3. ORAL CONTRACEPTIVE PILL (ORAL CONTRACEPTIVE NOS) [Concomitant]

REACTIONS (1)
  - ABORTION SPONTANEOUS [None]
